FAERS Safety Report 4445832-9 (Version None)
Quarter: 2004Q3

REPORT INFORMATION
  Report Type: 
  Country: None (occurrence: None)
  Receive Date: 20040910
  Receipt Date: 20040827
  Transmission Date: 20050211
  Serious: Yes (Other)
  Sender: FDA-Public Use
  Company Number: DE-JNJFOC-20040809695

PATIENT
  Sex: Male
  Weight: 68 kg

DRUGS (2)
  1. CONCERTA [Suspect]
     Route: 049
  2. RITALIN [Suspect]
     Route: 049

REACTIONS (2)
  - CEREBELLAR INFARCTION [None]
  - CEREBRAL ARTERY OCCLUSION [None]
